FAERS Safety Report 18915807 (Version 1)
Quarter: 2021Q1

REPORT INFORMATION
  Report Type: Report from Study
  Country: US (occurrence: US)
  Receive Date: 20210219
  Receipt Date: 20210219
  Transmission Date: 20210420
  Serious: Yes (Other)
  Sender: FDA-Public Use
  Company Number: US-JNJFOC-20210222631

PATIENT
  Age: 34 Year
  Sex: Female

DRUGS (3)
  1. SPRAVATO [Suspect]
     Active Substance: ESKETAMINE
     Dosage: 21 TOTAL DOSES
     Dates: start: 20200211, end: 20210115
  2. SPRAVATO [Suspect]
     Active Substance: ESKETAMINE
     Dates: start: 20210205, end: 20210205
  3. SPRAVATO [Suspect]
     Active Substance: ESKETAMINE
     Indication: DEPRESSION
     Dosage: 1 TOTAL DOSE
     Dates: start: 20200206, end: 20200206

REACTIONS (5)
  - Presyncope [Recovered/Resolved]
  - Dissociation [Recovered/Resolved]
  - Disorientation [Recovered/Resolved]
  - Sedation [Recovered/Resolved]
  - Hyperhidrosis [Recovered/Resolved]

NARRATIVE: CASE EVENT DATE: 20210205
